FAERS Safety Report 8541113-2 (Version None)
Quarter: 2012Q3

REPORT INFORMATION
  Report Type: 
  Country: None (occurrence: None)
  Receive Date: 20120726
  Receipt Date: 20111014
  Transmission Date: 20120928
  Serious: No
  Sender: FDA-Public Use
  Company Number: US-ASTRAZENECA-2011SE49700

PATIENT
  Age: 53 Year
  Sex: Female

DRUGS (6)
  1. AMBIENT [Concomitant]
  2. NASACORT [Concomitant]
  3. ATIVAN [Concomitant]
  4. LEVOTHYROXINE SODIUM [Concomitant]
  5. PROZAC [Concomitant]
  6. SEROQUEL [Suspect]
     Route: 048

REACTIONS (4)
  - DRUG WITHDRAWAL SYNDROME [None]
  - CONDITION AGGRAVATED [None]
  - DRUG INEFFECTIVE [None]
  - DRUG DOSE OMISSION [None]
